FAERS Safety Report 21766839 (Version 1)
Quarter: 2022Q4

REPORT INFORMATION
  Report Type: Spontaneous
  Country: CN (occurrence: CN)
  Receive Date: 20221222
  Receipt Date: 20221222
  Transmission Date: 20230113
  Serious: Yes (Hospitalization)
  Sender: FDA-Public Use
  Company Number: CN-MYLANLABS-2022M1144418

PATIENT
  Age: 59 Year
  Sex: Female

DRUGS (11)
  1. ATORVASTATIN [Suspect]
     Active Substance: ATORVASTATIN
     Indication: Acute myocardial infarction
     Dosage: 40 MILLIGRAM
     Route: 065
  2. NITROGLYCERIN [Suspect]
     Active Substance: NITROGLYCERIN
     Indication: Acute myocardial infarction
     Dosage: 10 MICROGRAM, QMINUTE
     Route: 042
  3. ASPIRIN [Suspect]
     Active Substance: ASPIRIN
     Indication: Acute myocardial infarction
     Dosage: 300 MILLIGRAM
     Route: 048
  4. TICAGRELOR [Suspect]
     Active Substance: TICAGRELOR
     Indication: Acute myocardial infarction
     Dosage: 180 MILLIGRAM
     Route: 065
  5. METOPROLOL [Suspect]
     Active Substance: METOPROLOL
     Indication: Acute myocardial infarction
     Dosage: 5 MILLIGRAM
     Route: 065
  6. HEPARIN [Suspect]
     Active Substance: HEPARIN SODIUM
     Indication: Acute myocardial infarction
     Dosage: UNK (50 U/KG LOADING DOSE)
     Route: 042
  7. HEPARIN [Suspect]
     Active Substance: HEPARIN SODIUM
     Dosage: UNK (12 U/MIN PUMPED)
     Route: 042
  8. ALTEPLASE [Suspect]
     Active Substance: ALTEPLASE
     Indication: Acute myocardial infarction
     Dosage: 50 MILLIGRAM (50MG DISSOLVED IN 50ML NS; 8ML WAS STATICALLY PUSHED AND PUMPED AT A SPEED OF 28ML/H)
     Route: 065
  9. MORPHINE [Suspect]
     Active Substance: MORPHINE
     Indication: Sedation
     Dosage: UNK
     Route: 065
  10. MORPHINE [Suspect]
     Active Substance: MORPHINE
     Indication: Acute myocardial infarction
  11. SODIUM CHLORIDE [Concomitant]
     Active Substance: SODIUM CHLORIDE
     Indication: Vehicle solution use
     Dosage: 50 MILLILITER
     Route: 065

REACTIONS (1)
  - Treatment failure [Unknown]
